FAERS Safety Report 7934919-1 (Version None)
Quarter: 2011Q4

REPORT INFORMATION
  Report Type: 
  Country: None (occurrence: None)
  Receive Date: 20111122
  Receipt Date: 20110817
  Transmission Date: 20120403
  Serious: No
  Sender: FDA-Public Use
  Company Number: US-MYLANLABS-2011S1017287

PATIENT
  Age: 56 Year
  Sex: Female
  Weight: 78.02 kg

DRUGS (3)
  1. OXYCODONE HCL [Concomitant]
     Indication: BACK PAIN
     Dosage: 5MG/325MG TABLET USED
     Dates: start: 20090101
  2. ZOLOFT [Concomitant]
     Indication: DEPRESSION
     Dates: start: 20110501
  3. LANSOPRAZOLE [Suspect]
     Indication: GASTROOESOPHAGEAL REFLUX DISEASE
     Route: 048
     Dates: start: 20110701

REACTIONS (2)
  - DRUG INEFFECTIVE [None]
  - GASTROOESOPHAGEAL REFLUX DISEASE [None]
